FAERS Safety Report 24634242 (Version 1)
Quarter: 2024Q4

REPORT INFORMATION
  Report Type: Spontaneous
  Country: CA (occurrence: CA)
  Receive Date: 20241119
  Receipt Date: 20241119
  Transmission Date: 20250114
  Serious: Yes (Other)
  Sender: INTERCEPT PHARMACEUTICALS
  Company Number: CA-ADVANZ PHARMA-202411009155

PATIENT
  Age: 67 Year
  Sex: Female

DRUGS (5)
  1. OCALIVA [Suspect]
     Active Substance: OBETICHOLIC ACID
     Indication: Primary biliary cholangitis
     Dosage: 5 MG, QD (OCALIVA 5MG ONCE DAILY ORAL)
     Route: 048
     Dates: start: 20240815
  2. URSODIOL [Concomitant]
     Active Substance: URSODIOL
     Dosage: 500 MG, BID (SINCE DIAGNOSIS)
  3. CRESTOR [Concomitant]
     Active Substance: ROSUVASTATIN CALCIUM
     Dosage: UNK
  4. SYNTHROID [Concomitant]
     Active Substance: LEVOTHYROXINE SODIUM
     Dosage: UNK
  5. ZOPICLONE [Concomitant]
     Active Substance: ZOPICLONE
     Dosage: UNK

REACTIONS (8)
  - Axillary nerve injury [Unknown]
  - Foot deformity [Unknown]
  - Feeling abnormal [Unknown]
  - Decreased appetite [Unknown]
  - Malaise [Unknown]
  - Hypokinesia [Recovered/Resolved]
  - Abdominal discomfort [Unknown]
  - Constipation [Unknown]
